FAERS Safety Report 10344620 (Version 1)
Quarter: 2014Q3

REPORT INFORMATION
  Report Type: Spontaneous
  Country: US (occurrence: None)
  Receive Date: 20140724
  Receipt Date: 20140724
  Transmission Date: 20150326
  Serious: No
  Sender: FDA-Public Use
  Company Number: None

PATIENT
  Age: 22 Year
  Sex: Female
  Weight: 59.88 kg

DRUGS (1)
  1. MICONAZOLE [Suspect]
     Active Substance: MICONAZOLE
     Indication: FUNGAL INFECTION
     Dosage: 3 DOSES
     Route: 067
     Dates: start: 20140711, end: 20140713

REACTIONS (3)
  - Application site pain [None]
  - Application site pruritus [None]
  - Therapeutic response decreased [None]

NARRATIVE: CASE EVENT DATE: 20140711
